FAERS Safety Report 24690991 (Version 1)
Quarter: 2024Q4

REPORT INFORMATION
  Report Type: Spontaneous
  Country: EG (occurrence: EG)
  Receive Date: 20241203
  Receipt Date: 20241203
  Transmission Date: 20250114
  Serious: Yes (Other)
  Sender: HIKMA
  Company Number: EG-HIKMA PHARMACEUTICALS-EG-H14001-24-11054

PATIENT

DRUGS (6)
  1. CISPLATIN [Suspect]
     Active Substance: CISPLATIN
     Indication: Breast cancer
     Dosage: 50 MG
     Route: 041
     Dates: start: 20240915
  2. CISPLATIN [Suspect]
     Active Substance: CISPLATIN
     Dosage: 50 MG
     Route: 041
     Dates: start: 20241020
  3. DEXAMETHASONE [Concomitant]
     Active Substance: DEXAMETHASONE
     Indication: Chemotherapy side effect prophylaxis
     Dosage: UNKNOWN
     Route: 065
  4. GEMCITABINE [Concomitant]
     Active Substance: GEMCITABINE
     Indication: Product used for unknown indication
     Dosage: UNKNOWN
     Route: 065
     Dates: start: 20240915
  5. ONDAMETIC [Concomitant]
     Indication: Chemotherapy side effect prophylaxis
     Dosage: UNKNOWN
     Route: 065
  6. PIRAFENE [Concomitant]
     Indication: Chemotherapy side effect prophylaxis
     Dosage: UNKNOWN
     Route: 065

REACTIONS (2)
  - Neuropathy peripheral [Recovering/Resolving]
  - Dyspnoea [Unknown]

NARRATIVE: CASE EVENT DATE: 20241020
